FAERS Safety Report 19441183 (Version 1)
Quarter: 2021Q2

REPORT INFORMATION
  Report Type: Spontaneous
  Country: FR (occurrence: FR)
  Receive Date: 20210621
  Receipt Date: 20210621
  Transmission Date: 20210717
  Serious: Yes (Life-Threatening)
  Sender: FDA-Public Use
  Company Number: FR-TEVA-2021-FR-1923327

PATIENT
  Age: 75 Year
  Sex: Female
  Weight: 70 kg

DRUGS (1)
  1. DOXORUBICINE [Suspect]
     Active Substance: DOXORUBICIN
     Indication: CHEMOTHERAPY
     Dosage: 75MG/M
     Route: 042
     Dates: start: 20210121, end: 20210304

REACTIONS (1)
  - Congestive cardiomyopathy [Recovering/Resolving]

NARRATIVE: CASE EVENT DATE: 20210410
